FAERS Safety Report 6258983-3 (Version None)
Quarter: 2009Q3

REPORT INFORMATION
  Report Type: 
  Country: None (occurrence: None)
  Receive Date: 20090707
  Receipt Date: 20090627
  Transmission Date: 20100115
  Serious: Yes (Other)
  Sender: FDA-Public Use
  Company Number: PHHY2009CA26444

PATIENT

DRUGS (1)
  1. CO-DIOVAN T32564+ [Suspect]
     Dosage: 160/12.5 MG
     Dates: start: 20081101

REACTIONS (2)
  - DIABETES MELLITUS [None]
  - MICROALBUMINURIA [None]
